FAERS Safety Report 9161531 (Version 1)
Quarter: 2013Q1

REPORT INFORMATION
  Report Type: Spontaneous
  Country: BE (occurrence: BE)
  Receive Date: 20130313
  Receipt Date: 20130313
  Transmission Date: 20140127
  Serious: Yes (Congenital Anomaly)
  Sender: FDA-Public Use
  Company Number: BE-BIOMARINAP-BE-2013-100441

PATIENT
  Age: 0 Year
  Sex: Male
  Weight: 2.84 kg

DRUGS (2)
  1. KUVAN [Suspect]
     Indication: PHENYLKETONURIA
     Dosage: 1200 MG, UNK
     Dates: start: 201105, end: 20130105
  2. TYROSINE [Concomitant]
     Indication: PRODUCT USED FOR UNKNOWN INDICATION
     Dosage: 4 G, UNK

REACTIONS (1)
  - Phenylketonuria [Unknown]
